FAERS Safety Report 4425694-6 (Version None)
Quarter: 2004Q3

REPORT INFORMATION
  Report Type: 
  Country: None (occurrence: None)
  Receive Date: 20040719
  Receipt Date: 20040407
  Transmission Date: 20050211
  Serious: No
  Sender: FDA-Public Use
  Company Number: A03200401077

PATIENT
  Sex: Male

DRUGS (3)
  1. UROXATRAL [Suspect]
     Indication: PROSTATIC DISORDER
     Dosage: 10 MG OD - ORAL
     Route: 048
     Dates: start: 20040331
  2. CIPROFLOXACIN [Concomitant]
  3. ZOLPIDEM TARTRATE [Concomitant]

REACTIONS (1)
  - FAECES DISCOLOURED [None]
